FAERS Safety Report 9790336 (Version 1)
Quarter: 2013Q4

REPORT INFORMATION
  Report Type: Spontaneous
  Country: US (occurrence: US)
  Receive Date: 20131231
  Receipt Date: 20131231
  Transmission Date: 20140711
  Serious: Yes (Other)
  Sender: FDA-Public Use
  Company Number: US-TEVA-453761USA

PATIENT
  Age: 33 Year
  Sex: Female
  Weight: 79.9 kg

DRUGS (2)
  1. PLAN B ONE-STEP [Suspect]
     Indication: POST COITAL CONTRACEPTION
     Dosage: 1.5 MILLIGRAM DAILY;
     Route: 048
     Dates: start: 20130713, end: 20130713
  2. HOMEOPATIC PREPARATION [Concomitant]
     Indication: VAGINITIS BACTERIAL

REACTIONS (4)
  - Foetal death [Recovered/Resolved]
  - Pregnancy after post coital contraception [Recovered/Resolved]
  - Menstruation irregular [Recovered/Resolved]
  - Exposure during pregnancy [Recovered/Resolved]
